FAERS Safety Report 8334618 (Version 4)
Quarter: 2012Q4

REPORT INFORMATION
  Report Type: Report from Study
  Country: JP (occurrence: JP)
  Receive Date: 20120112
  Receipt Date: 20120905
  Transmission Date: 20130627
  Serious: Yes (Hospitalization, Other)
  Sender: FDA-Public Use
  Company Number: JP-EISAI INC-E7389-01821-SPO-JP

PATIENT
  Age: 66 Year
  Sex: Female
  Weight: 81 kg

DRUGS (16)
  1. HALAVEN [Suspect]
     Indication: BREAST CANCER RECURRENT
     Route: 041
     Dates: start: 20111212
  2. HALAVEN [Suspect]
     Indication: METASTASES TO LUNG
  3. HALAVEN [Suspect]
     Indication: METASTASES TO LIVER
  4. HALAVEN [Suspect]
     Indication: METASTASES TO BRAIN
  5. HALAVEN [Suspect]
     Indication: METASTASES TO LYMPH NODES
  6. FLOMOX [Concomitant]
     Route: 048
  7. BLOPRESS [Concomitant]
     Route: 048
  8. TAKEPRON [Concomitant]
     Route: 048
  9. BAYASPIRIN [Concomitant]
     Route: 048
  10. AMARYL [Concomitant]
     Route: 048
  11. ACTOS [Concomitant]
     Route: 048
  12. NORVASC [Concomitant]
     Route: 048
  13. SIGMART [Concomitant]
     Route: 048
  14. FEMARA [Concomitant]
     Indication: BREAST CANCER RECURRENT
     Route: 048
  15. HUSCODE [Concomitant]
     Indication: METASTASES TO LIVER
     Route: 048
  16. NITROPEN [Concomitant]
     Indication: ANGINA PECTORIS
     Route: 065

REACTIONS (4)
  - Infection [Recovered/Resolved]
  - Malignant neoplasm progression [Recovering/Resolving]
  - Urinary tract infection [Recovering/Resolving]
  - Myocardial infarction [Recovering/Resolving]
